FAERS Safety Report 6043011-5 (Version None)
Quarter: 2009Q1

REPORT INFORMATION
  Report Type: 
  Country: None (occurrence: None)
  Receive Date: 20090119
  Receipt Date: 20090114
  Transmission Date: 20090719
  Serious: Yes (Hospitalization, Other)
  Sender: FDA-Public Use
  Company Number: US-ABBOTT-09P-163-0497811-00

PATIENT
  Sex: Male

DRUGS (3)
  1. HUMIRA [Suspect]
     Indication: CROHN'S DISEASE
     Route: 058
     Dates: start: 20080901, end: 20081201
  2. HUMIRA [Suspect]
     Route: 058
     Dates: start: 20081201
  3. HUMIRA [Suspect]

REACTIONS (5)
  - COLECTOMY TOTAL [None]
  - DEHYDRATION [None]
  - DRUG INEFFECTIVE [None]
  - HAEMORRHAGIC STROKE [None]
  - PARANASAL SINUS HYPERSECRETION [None]
